FAERS Safety Report 4747688-3 (Version None)
Quarter: 2005Q3

REPORT INFORMATION
  Report Type: 
  Country: None (occurrence: None)
  Receive Date: 20050818
  Receipt Date: 20050307
  Transmission Date: 20060218
  Serious: Yes (Other)
  Sender: FDA-Public Use
  Company Number: US-SP-2005-00498

PATIENT
  Age: 20 Year
  Sex: Female

DRUGS (14)
  1. TUBERSOL [Suspect]
     Indication: TUBERCULIN TEST
     Route: 058
     Dates: start: 20050214
  2. TUBERSOL [Suspect]
     Route: 058
     Dates: start: 20050214
  3. MOBIC [Concomitant]
     Dates: start: 20050214
  4. DARVOCET-N 100 [Concomitant]
     Dates: start: 20050131
  5. MULTI-VITAMIN [Concomitant]
     Dates: start: 20040816
  6. MOTRIN [Concomitant]
     Dates: start: 20040623
  7. VITAMIN E [Concomitant]
     Dates: start: 20040816
  8. CALCIUM CITRATE [Concomitant]
     Dates: start: 20040816
  9. ASCORBIC ACID [Concomitant]
     Dates: start: 20041025
  10. FOLIC ACID [Concomitant]
  11. SKELAXIN [Concomitant]
     Dates: start: 20050103
  12. PROMETHAZINE HCL [Concomitant]
  13. VITAMIN B-12 METHYLCOBALAMIN [Concomitant]
     Dates: start: 20050131
  14. INDOLE 3 CARBINOL/DIM [Concomitant]

REACTIONS (28)
  - ANXIETY [None]
  - CHEST DISCOMFORT [None]
  - CONVERSION DISORDER [None]
  - COUGH [None]
  - DYSPNOEA [None]
  - FEAR [None]
  - HEADACHE [None]
  - HYPERSENSITIVITY [None]
  - INCORRECT ROUTE OF DRUG ADMINISTRATION [None]
  - INJECTION SITE ERYTHEMA [None]
  - INJECTION SITE INDURATION [None]
  - INJECTION SITE PRURITUS [None]
  - INJECTION SITE REACTION [None]
  - INJECTION SITE VESICLES [None]
  - LIVEDO RETICULARIS [None]
  - OESOPHAGEAL SPASM [None]
  - ORAL PRURITUS [None]
  - PAIN IN EXTREMITY [None]
  - PARAESTHESIA ORAL [None]
  - PRURITUS [None]
  - PYREXIA [None]
  - RASH [None]
  - RASH PAPULAR [None]
  - SHOULDER PAIN [None]
  - STRIDOR [None]
  - THROAT TIGHTNESS [None]
  - TUBERCULIN TEST POSITIVE [None]
  - WHEEZING [None]
